FAERS Safety Report 7240414-8 (Version None)
Quarter: 2011Q1

REPORT INFORMATION
  Report Type: 
  Country: None (occurrence: None)
  Receive Date: 20110124
  Receipt Date: 20110118
  Transmission Date: 20110831
  Serious: Yes (Other)
  Sender: FDA-Public Use
  Company Number: DE-JNJFOC-20110104540

PATIENT
  Age: 3 Year
  Sex: Female

DRUGS (1)
  1. TOPAMAX [Suspect]
     Indication: EPILEPSY
     Route: 048

REACTIONS (3)
  - OSTEOPOROSIS [None]
  - METABOLIC ACIDOSIS [None]
  - PATHOLOGICAL FRACTURE [None]
